FAERS Safety Report 12196203 (Version 1)
Quarter: 2016Q1

REPORT INFORMATION
  Report Type: Report from Study
  Country: BR (occurrence: BR)
  Receive Date: 20160321
  Receipt Date: 20160321
  Transmission Date: 20160526
  Serious: Yes (Other)
  Sender: FDA-Public Use
  Company Number: BR-JNJFOC-20160314686

PATIENT
  Sex: Female

DRUGS (5)
  1. TAMIRAM [Suspect]
     Active Substance: LEVOFLOXACIN
     Indication: NASOPHARYNGITIS
     Route: 065
  2. IMBRUVICA [Suspect]
     Active Substance: IBRUTINIB
     Indication: CHRONIC LYMPHOCYTIC LEUKAEMIA
     Route: 048
     Dates: start: 20160217
  3. SYNTHROID [Concomitant]
     Active Substance: LEVOTHYROXINE SODIUM
     Route: 065
  4. ALLOPURINOL. [Concomitant]
     Active Substance: ALLOPURINOL
     Route: 065
  5. IMBRUVICA [Suspect]
     Active Substance: IBRUTINIB
     Indication: B-CELL SMALL LYMPHOCYTIC LYMPHOMA
     Route: 048
     Dates: start: 20160217

REACTIONS (3)
  - Nasopharyngitis [Recovered/Resolved]
  - Blood count abnormal [Unknown]
  - Diarrhoea [Unknown]
